FAERS Safety Report 12851665 (Version 1)
Quarter: 2016Q4

REPORT INFORMATION
  Report Type: Spontaneous
  Country: US (occurrence: US)
  Receive Date: 20161017
  Receipt Date: 20161017
  Transmission Date: 20170207
  Serious: Yes (Hospitalization)
  Sender: FDA-Public Use
  Company Number: US-JNJFOC-20160902943

PATIENT
  Age: 63 Year
  Sex: Male
  Weight: 117 kg

DRUGS (13)
  1. IMBRUVICA [Suspect]
     Active Substance: IBRUTINIB
     Indication: CHRONIC LYMPHOCYTIC LEUKAEMIA
     Route: 048
     Dates: start: 201507, end: 20160824
  2. TRAMADOL. [Concomitant]
     Active Substance: TRAMADOL
  3. CELEBREX [Concomitant]
     Active Substance: CELECOXIB
  4. TRAZODONE [Concomitant]
     Active Substance: TRAZODONE HYDROCHLORIDE
  5. XARELTO [Concomitant]
     Active Substance: RIVAROXABAN
  6. NEXIUM [Concomitant]
     Active Substance: ESOMEPRAZOLE MAGNESIUM
  7. AMLODIPINE [Concomitant]
     Active Substance: AMLODIPINE BESYLATE
  8. LIPITOR [Concomitant]
     Active Substance: ATORVASTATIN CALCIUM
  9. METOPROLOL SUCCINATE. [Concomitant]
     Active Substance: METOPROLOL SUCCINATE
  10. ZOFRAN [Concomitant]
     Active Substance: ONDANSETRON HYDROCHLORIDE
  11. COZAAR [Concomitant]
     Active Substance: LOSARTAN POTASSIUM
  12. CLOTRIMAZOLE. [Concomitant]
     Active Substance: CLOTRIMAZOLE
  13. LEVOFLOXACIN. [Concomitant]
     Active Substance: LEVOFLOXACIN

REACTIONS (2)
  - White blood cell count decreased [Not Recovered/Not Resolved]
  - Pneumonia [Recovered/Resolved]

NARRATIVE: CASE EVENT DATE: 20160607
